FAERS Safety Report 20083772 (Version 1)
Quarter: 2021Q4

REPORT INFORMATION
  Report Type: Spontaneous
  Country: IL (occurrence: IL)
  Receive Date: 20211118
  Receipt Date: 20211118
  Transmission Date: 20220303
  Serious: Yes (Other)
  Sender: FDA-Public Use
  Company Number: IL-002147023-NVSC2021IL254841

PATIENT
  Age: 91 Year
  Sex: Female

DRUGS (2)
  1. LUCENTIS [Suspect]
     Active Substance: RANIBIZUMAB
     Indication: Age-related macular degeneration
     Route: 065
     Dates: start: 201209, end: 201405
  2. LUCENTIS [Suspect]
     Active Substance: RANIBIZUMAB
     Indication: Choroidal neovascularisation

REACTIONS (5)
  - Subretinal fluid [Unknown]
  - Retinal oedema [Unknown]
  - Detachment of retinal pigment epithelium [Unknown]
  - Visual acuity tests abnormal [Unknown]
  - Drug ineffective [Unknown]
